FAERS Safety Report 6483148-X (Version None)
Quarter: 2009Q4

REPORT INFORMATION
  Report Type: 
  Country: None (occurrence: None)
  Receive Date: 20091209
  Receipt Date: 20091130
  Transmission Date: 20100525
  Serious: Yes (Death)
  Sender: FDA-Public Use
  Company Number: KR-ROCHE-672318

PATIENT
  Age: 47 Year
  Sex: Female

DRUGS (1)
  1. TAMIFLU [Suspect]
     Indication: H1N1 INFLUENZA
     Dosage: DRUG NAME REPORTED AS OSELTAMIVIR PHOSPHATE.
     Route: 065
     Dates: start: 20091029

REACTIONS (1)
  - H1N1 INFLUENZA [None]
